FAERS Safety Report 12347479 (Version 1)
Quarter: 2016Q2

REPORT INFORMATION
  Report Type: Spontaneous
  Country: US (occurrence: US)
  Receive Date: 20160509
  Receipt Date: 20160509
  Transmission Date: 20160815
  Serious: Yes (Other)
  Sender: FDA-Public Use
  Company Number: US-JAZZ-JPI-P-007776

PATIENT
  Sex: Female
  Weight: 99.77 kg

DRUGS (7)
  1. LEVONORGESTREL W/ETHINYLESTRADIOL [Concomitant]
     Active Substance: ETHINYL ESTRADIOL\LEVONORGESTREL
     Indication: CONTRACEPTION
  2. ACETAMINOPHEN W/OXYCODONE [Concomitant]
     Active Substance: ACETAMINOPHEN\OXYCODONE HYDROCHLORIDE
     Indication: INTERVERTEBRAL DISC PROTRUSION
     Dosage: 7.5 MG SINGLE (3 TIMES DAILY AS NEEDED)
  3. XYREM [Suspect]
     Active Substance: SODIUM OXYBATE
     Dosage: 3 G, BID
     Route: 048
     Dates: start: 20070522
  4. HYDROCHLOROTHIAZIDE. [Suspect]
     Active Substance: HYDROCHLOROTHIAZIDE
     Indication: BLOOD PRESSURE INCREASED
     Dates: start: 20090701, end: 200909
  5. XYREM [Suspect]
     Active Substance: SODIUM OXYBATE
     Dosage: 3.75 G, BID
     Route: 048
     Dates: start: 2007, end: 20080830
  6. XYREM [Suspect]
     Active Substance: SODIUM OXYBATE
     Dosage: 4.5 G, BID
     Route: 048
     Dates: start: 20080831
  7. PHENTERMINE. [Suspect]
     Active Substance: PHENTERMINE
     Indication: CATAPLEXY
     Dosage: 37.5 MG SINGLE (TWICE DAILY AS NEEDED)
     Dates: end: 200901

REACTIONS (6)
  - Therapeutic response decreased [Unknown]
  - Blood pressure increased [Recovered/Resolved]
  - Memory impairment [Not Recovered/Not Resolved]
  - Sleep-related eating disorder [Recovered/Resolved]
  - Blood potassium decreased [Unknown]
  - Stress [Not Recovered/Not Resolved]

NARRATIVE: CASE EVENT DATE: 2009
